FAERS Safety Report 9282510 (Version 1)
Quarter: 2013Q2

REPORT INFORMATION
  Report Type: Spontaneous
  Country: US (occurrence: None)
  Receive Date: 20130509
  Receipt Date: 20130509
  Transmission Date: 20140414
  Serious: No
  Sender: FDA-Public Use
  Company Number: None

PATIENT
  Age: 67 Year
  Sex: Male
  Weight: 82.5 kg

DRUGS (1)
  1. TOCILIZUMAB [Suspect]
     Route: 042
     Dates: start: 20120907, end: 20130222

REACTIONS (1)
  - Eosinophilia [None]
